FAERS Safety Report 9323020 (Version 2)
Quarter: 2014Q1

REPORT INFORMATION
  Report Type: Spontaneous
  Country: US (occurrence: US)
  Receive Date: 20130603
  Receipt Date: 20140218
  Transmission Date: 20141002
  Serious: Yes (Hospitalization)
  Sender: FDA-Public Use
  Company Number: US-B.I. PHARMACEUTICALS,INC./RIDGEFIELD-2013-BI-14872BP

PATIENT
  Sex: Male
  Weight: 80.29 kg

DRUGS (12)
  1. PRADAXA [Suspect]
     Indication: ATRIAL FIBRILLATION
     Dates: start: 20120322, end: 20120326
  2. PRADAXA [Suspect]
     Indication: ATRIAL FLUTTER
  3. ASPIRIN [Concomitant]
  4. PLAVIX [Concomitant]
  5. LIPITOR [Concomitant]
  6. FLOMAX [Concomitant]
  7. CARVEDILOL [Concomitant]
  8. OMEGA FISH OIL SUPPLEMENTS [Concomitant]
  9. FOLIC ACID [Concomitant]
  10. IRON [Concomitant]
     Indication: ANAEMIA
  11. DRONEDARONE [Concomitant]
  12. DESVENLAFAXINE [Concomitant]

REACTIONS (4)
  - Gastrointestinal haemorrhage [Not Recovered/Not Resolved]
  - Gastritis haemorrhagic [Unknown]
  - Coagulopathy [Unknown]
  - Renal failure acute [Unknown]
